FAERS Safety Report 7080455-7 (Version None)
Quarter: 2010Q4

REPORT INFORMATION
  Report Type: 
  Country: None (occurrence: None)
  Receive Date: 20101103
  Receipt Date: 20100323
  Transmission Date: 20110411
  Serious: Yes (Hospitalization)
  Sender: FDA-Public Use
  Company Number: US-BAYER-200942204NA

PATIENT
  Age: 38 Year
  Sex: Female
  Weight: 58 kg

DRUGS (14)
  1. YAZ [Suspect]
     Indication: CONTRACEPTION
     Route: 048
     Dates: start: 20070816, end: 20071126
  2. FIORICET [Concomitant]
     Indication: HEADACHE
     Dates: start: 20070501, end: 20071126
  3. ORTHO TRI-CYCLEN [Concomitant]
     Indication: CONTRACEPTION
     Dates: start: 20030101, end: 20070916
  4. DIFFERIN [Concomitant]
     Indication: HEADACHE
  5. SARAFEM [Concomitant]
     Indication: PREMENSTRUAL SYNDROME
     Dosage: UNIT DOSE: 10 MG
  6. HEPARIN [Concomitant]
     Dates: start: 20071101, end: 20071207
  7. ACETAMINOPHEN [Concomitant]
  8. TRAMADOL HCL [Concomitant]
  9. PAMELOR [Concomitant]
  10. ULTRAM [Concomitant]
     Indication: PAIN
  11. NORTRIPTYLINE [Concomitant]
     Indication: HYPOAESTHESIA
     Dates: start: 20071221, end: 20071226
  12. NORTRIPTYLINE [Concomitant]
     Dates: start: 20071201
  13. NORTRIPTYLINE [Concomitant]
  14. GLYCOLAX [Concomitant]

REACTIONS (7)
  - ANXIETY [None]
  - CEREBRAL VENOUS THROMBOSIS [None]
  - COGNITIVE DISORDER [None]
  - DEPRESSION [None]
  - GAIT DISTURBANCE [None]
  - MENTAL DISORDER [None]
  - TRAUMATIC BRAIN INJURY [None]
